FAERS Safety Report 22203115 (Version 1)
Quarter: 2023Q2

REPORT INFORMATION
  Report Type: Spontaneous
  Country: US (occurrence: US)
  Receive Date: 20230412
  Receipt Date: 20230412
  Transmission Date: 20230722
  Serious: Yes (Other)
  Sender: FDA-Public Use
  Company Number: US-002147023-NVSC2023US081794

PATIENT
  Age: 53 Year
  Sex: Female

DRUGS (2)
  1. PREDNISOLONE [Suspect]
     Active Substance: PREDNISOLONE
     Indication: Product used for unknown indication
     Dosage: 1 DRP, BID (FROM 6 MONTHS, ONE DROP IN HER RIGHT EYE IN THE MORNING AND ONE DROP AT NIGHT)
  2. CYCLOPENTOLATE [Concomitant]
     Active Substance: CYCLOPENTOLATE
     Indication: Product used for unknown indication
     Dosage: NOT AT THE SAME TIME HOURS APART

REACTIONS (3)
  - Retinal detachment [Unknown]
  - Blindness unilateral [Unknown]
  - Cataract [Unknown]

NARRATIVE: CASE EVENT DATE: 20220501
